FAERS Safety Report 19675897 (Version 1)
Quarter: 2021Q3

REPORT INFORMATION
  Report Type: Spontaneous
  Country: BE (occurrence: BE)
  Receive Date: 20210809
  Receipt Date: 20210809
  Transmission Date: 20211014
  Serious: Yes (Other)
  Sender: FDA-Public Use
  Company Number: BE-PRA-000009

PATIENT
  Age: 33 Year

DRUGS (3)
  1. METHYLPREDNISOLONE. [Suspect]
     Active Substance: METHYLPREDNISOLONE
     Indication: TUBULOINTERSTITIAL NEPHRITIS AND UVEITIS SYNDROME
     Route: 048
  2. PREDNISONE. [Suspect]
     Active Substance: PREDNISONE
     Indication: IRIDOCYCLITIS
     Route: 061
  3. METHYLPREDNISOLONE. [Suspect]
     Active Substance: METHYLPREDNISOLONE
     Indication: TUBULOINTERSTITIAL NEPHRITIS AND UVEITIS SYNDROME

REACTIONS (4)
  - Tubulointerstitial nephritis and uveitis syndrome [Recovering/Resolving]
  - Disease recurrence [Recovering/Resolving]
  - Product use in unapproved indication [Unknown]
  - Drug dependence [Unknown]
